FAERS Safety Report 14689494 (Version 1)
Quarter: 2018Q1

REPORT INFORMATION
  Report Type: Spontaneous
  Country: AU (occurrence: AU)
  Receive Date: 20180328
  Receipt Date: 20180328
  Transmission Date: 20180509
  Serious: Yes (Other)
  Sender: FDA-Public Use
  Company Number: AU-PFIZER INC-2018125817

PATIENT
  Sex: Male

DRUGS (2)
  1. SOMAC [Suspect]
     Active Substance: PANTOPRAZOLE SODIUM
     Dosage: UNK (AT NIGHT LONG TERM)
     Route: 048
  2. SOMAC [Suspect]
     Active Substance: PANTOPRAZOLE SODIUM
     Dosage: UNK (IN THE MORNING)
     Route: 048

REACTIONS (3)
  - Small intestine carcinoma [Unknown]
  - Dysphagia [Unknown]
  - Dementia [Unknown]
